FAERS Safety Report 24884275 (Version 3)
Quarter: 2025Q4

REPORT INFORMATION
  Report Type: Report from Study
  Country: PK (occurrence: PK)
  Receive Date: 20250124
  Receipt Date: 20251201
  Transmission Date: 20260118
  Serious: Yes (Disabling)
  Sender: MYLAN
  Company Number: PK-MYLANLABS-2025M1005847

PATIENT
  Age: 12 Year
  Sex: Female
  Weight: 43 kg

DRUGS (4)
  1. PRETOMANID [Suspect]
     Active Substance: PRETOMANID
     Indication: Tuberculosis
     Dosage: 200 MILLIGRAM, QD (FOR 4 MONTHS)
     Dates: start: 20240928
  2. BEDAQUILINE [Suspect]
     Active Substance: BEDAQUILINE
     Indication: Tuberculosis
     Dosage: 200 MILLIGRAM, 3XW (FOR 4 MONTHS)
     Dates: start: 20240928
  3. LINEZOLID [Suspect]
     Active Substance: LINEZOLID
     Indication: Tuberculosis
     Dosage: 600 MILLIGRAM, QD (FOR 4 MONTHS)
     Dates: start: 20240928, end: 20250121
  4. VITAMIN B6 [Concomitant]
     Active Substance: PYRIDOXINE HYDROCHLORIDE
     Indication: Prophylaxis
     Dosage: 50 MILLIGRAM, QD
     Dates: start: 20240928

REACTIONS (2)
  - Optic neuritis [Unknown]
  - Off label use [Unknown]

NARRATIVE: CASE EVENT DATE: 20240928
